FAERS Safety Report 19439907 (Version 3)
Quarter: 2021Q3

REPORT INFORMATION
  Report Type: Spontaneous
  Country: US (occurrence: US)
  Receive Date: 20210620
  Receipt Date: 20210909
  Transmission Date: 20211014
  Serious: No
  Sender: FDA-Public Use
  Company Number: US-ELI_LILLY_AND_COMPANY-US202106009177

PATIENT
  Age: 46 Year
  Sex: Female

DRUGS (23)
  1. BASAGLAR [Suspect]
     Active Substance: INSULIN GLARGINE
     Indication: TYPE 2 DIABETES MELLITUS
     Dosage: 75 U, PRN
     Route: 058
     Dates: start: 2019
  2. BASAGLAR [Suspect]
     Active Substance: INSULIN GLARGINE
     Dosage: 75 U, PRN
     Route: 058
     Dates: start: 2019
  3. BASAGLAR [Suspect]
     Active Substance: INSULIN GLARGINE
     Dosage: 75 U, PRN
     Route: 058
     Dates: start: 2019
  4. BASAGLAR [Suspect]
     Active Substance: INSULIN GLARGINE
     Dosage: 100 U, DAILY
     Route: 058
  5. INSULIN LISPRO [Suspect]
     Active Substance: INSULIN LISPRO
     Indication: TYPE 2 DIABETES MELLITUS
     Dosage: 16?18 U, QOD
     Route: 065
     Dates: start: 2019
  6. INSULIN LISPRO [Suspect]
     Active Substance: INSULIN LISPRO
     Dosage: 16?18 U, QOD
     Route: 065
     Dates: start: 2019
  7. METFORMIN [Concomitant]
     Active Substance: METFORMIN HYDROCHLORIDE
     Indication: TYPE 2 DIABETES MELLITUS
  8. BASAGLAR [Suspect]
     Active Substance: INSULIN GLARGINE
     Indication: TYPE 2 DIABETES MELLITUS
     Dosage: 75 U, PRN
     Route: 058
     Dates: start: 2019
  9. INSULIN LISPRO [Suspect]
     Active Substance: INSULIN LISPRO
     Indication: TYPE 2 DIABETES MELLITUS
     Dosage: 16?18 U, QOD
     Route: 065
     Dates: start: 2019
  10. INSULIN LISPRO [Suspect]
     Active Substance: INSULIN LISPRO
     Indication: TYPE 2 DIABETES MELLITUS
     Dosage: 16?18 U, QOD
     Route: 065
     Dates: start: 2019
  11. INSULIN LISPRO [Suspect]
     Active Substance: INSULIN LISPRO
     Dosage: 16?18 U, QOD
     Route: 065
     Dates: start: 2019
  12. BASAGLAR [Suspect]
     Active Substance: INSULIN GLARGINE
     Dosage: 75 U, PRN
     Route: 058
     Dates: start: 2019
  13. INSULIN LISPRO [Suspect]
     Active Substance: INSULIN LISPRO
     Dosage: 25 U, QID
     Route: 065
  14. BASAGLAR [Suspect]
     Active Substance: INSULIN GLARGINE
     Dosage: 75 U, PRN
     Route: 058
     Dates: start: 2019
  15. BASAGLAR [Suspect]
     Active Substance: INSULIN GLARGINE
     Dosage: 100 U, DAILY
     Route: 058
  16. HUMALOG [Suspect]
     Active Substance: INSULIN LISPRO
     Indication: PRODUCT USED FOR UNKNOWN INDICATION
     Dosage: 16 U, BEFORE MEAL
     Route: 065
  17. INSULIN LISPRO [Suspect]
     Active Substance: INSULIN LISPRO
     Dosage: 16?18 U, QOD
     Route: 065
     Dates: start: 2019
  18. INSULIN LISPRO [Suspect]
     Active Substance: INSULIN LISPRO
     Dosage: 25 U, QID
     Route: 065
  19. INSULIN LISPRO [Suspect]
     Active Substance: INSULIN LISPRO
     Dosage: 25 U, QID
     Route: 065
  20. BASAGLAR [Suspect]
     Active Substance: INSULIN GLARGINE
     Dosage: 75 U, PRN
     Route: 058
     Dates: start: 2019
  21. BASAGLAR [Suspect]
     Active Substance: INSULIN GLARGINE
     Dosage: 75 U, PRN
     Route: 058
     Dates: start: 2019
  22. HUMALOG [Suspect]
     Active Substance: INSULIN LISPRO
     Indication: PRODUCT USED FOR UNKNOWN INDICATION
     Dosage: 16 U, BEFORE MEAL
     Route: 065
  23. GLIMEPIRIDE. [Concomitant]
     Active Substance: GLIMEPIRIDE
     Indication: TYPE 2 DIABETES MELLITUS
     Dosage: 4 MG, BID

REACTIONS (9)
  - Nasopharyngitis [Recovering/Resolving]
  - Incorrect dose administered [Unknown]
  - Vomiting [Recovered/Resolved]
  - Influenza like illness [Recovering/Resolving]
  - Blood glucose increased [Recovered/Resolved]
  - Illness [Unknown]
  - Dizziness [Recovered/Resolved]
  - Glycosylated haemoglobin increased [Recovered/Resolved]
  - Vertigo [Recovered/Resolved]

NARRATIVE: CASE EVENT DATE: 20210808
